FAERS Safety Report 4960435-5 (Version None)
Quarter: 2006Q2

REPORT INFORMATION
  Report Type: 
  Country: None (occurrence: None)
  Receive Date: 20060403
  Receipt Date: 20060322
  Transmission Date: 20061013
  Serious: Yes (Hospitalization)
  Sender: FDA-Public Use
  Company Number: ES-JNJFOC-20060305630

PATIENT
  Age: 57 Year
  Sex: Male

DRUGS (4)
  1. REMICADE [Suspect]
     Dosage: TOTAL 5 DOSES AT WEEK 0, 2, 4, 8, AND 16
     Route: 042
  2. ISONIAZID [Concomitant]
     Indication: DISSEMINATED TUBERCULOSIS
     Dosage: 300 MG/DAY FOR TWO MONTHS PRIOR TO STARTING INFLIXIMAB, TOTAL TREATMENT LENGTH 6 MONTHS
  3. AZATHIOPRINE [Concomitant]
  4. AZATHIOPRINE [Concomitant]

REACTIONS (3)
  - ACUTE RESPIRATORY FAILURE [None]
  - DISSEMINATED TUBERCULOSIS [None]
  - HEPATOTOXICITY [None]
